FAERS Safety Report 7747781-7 (Version None)
Quarter: 2011Q3

REPORT INFORMATION
  Report Type: 
  Country: None (occurrence: None)
  Receive Date: 20110913
  Receipt Date: 20110902
  Transmission Date: 20111222
  Serious: Yes (Life-Threatening, Hospitalization)
  Sender: FDA-Public Use
  Company Number: US-BAYER-2011-022556

PATIENT
  Age: 24 Year
  Sex: Female
  Weight: 81.633 kg

DRUGS (2)
  1. TOPAMAX [Concomitant]
     Dosage: 50 MG, BID
     Route: 048
  2. YAZ [Suspect]
     Indication: CONTRACEPTION
     Dosage: UNK
     Dates: start: 20070628, end: 20071102

REACTIONS (7)
  - FEAR [None]
  - THROMBOSIS [None]
  - DEEP VEIN THROMBOSIS [None]
  - INJURY [None]
  - ANXIETY [None]
  - PAIN [None]
  - ANHEDONIA [None]
